FAERS Safety Report 6176064-4 (Version None)
Quarter: 2009Q2

REPORT INFORMATION
  Report Type: 
  Country: None (occurrence: None)
  Receive Date: 20090501
  Receipt Date: 20090417
  Transmission Date: 20091009
  Serious: Yes (Other)
  Sender: FDA-Public Use
  Company Number: BR-PFIZER INC-2009194709

PATIENT

DRUGS (9)
  1. MARAVIROC [Suspect]
     Indication: HIV INFECTION
     Dosage: 150 MG, 2X/DAY
     Route: 048
     Dates: start: 20080418
  2. SULFADIAZINE [Suspect]
     Indication: TOXOPLASMOSIS PROPHYLAXIS
     Dosage: 500 MG, 3X/DAY
     Route: 048
     Dates: start: 20090217, end: 20090401
  3. PYRIMETHAMINE [Suspect]
     Indication: TOXOPLASMOSIS PROPHYLAXIS
     Dosage: 25 MG, 4X/DAY
     Route: 048
     Dates: start: 20090217, end: 20090401
  4. TENOFOVIR [Concomitant]
     Dosage: UNK
     Route: 048
     Dates: start: 20080418
  5. LAMIVUDINE [Concomitant]
     Dosage: UNK
     Route: 048
     Dates: start: 20080418
  6. DARUNAVIR [Concomitant]
     Dosage: UNK
     Route: 048
     Dates: start: 20080418
  7. RITONAVIR [Concomitant]
     Dosage: UNK
     Route: 048
     Dates: start: 20080418
  8. ENFUVIRTIDE [Concomitant]
     Dosage: UNK
     Route: 048
     Dates: start: 20080418, end: 20090401
  9. ENFUVIRTIDE [Concomitant]
     Dosage: UNK
     Route: 048
     Dates: start: 20090406

REACTIONS (1)
  - THROMBOCYTOPENIA [None]
